FAERS Safety Report 7564959-6 (Version None)
Quarter: 2011Q2

REPORT INFORMATION
  Report Type: 
  Country: None (occurrence: None)
  Receive Date: 20110622
  Receipt Date: 20110302
  Transmission Date: 20111010
  Serious: Yes (Other)
  Sender: FDA-Public Use
  Company Number: US-MYLANLABS-2011S1004420

PATIENT
  Age: 54 Year
  Sex: Female

DRUGS (3)
  1. CLOZAPINE [Suspect]
     Route: 048
     Dates: end: 20110301
  2. CHEMOTHERAPEUTICS [Suspect]
     Indication: LUNG NEOPLASM MALIGNANT
  3. RADIATION THERAPY [Concomitant]
     Indication: LUNG NEOPLASM MALIGNANT

REACTIONS (1)
  - LEUKOPENIA [None]
